FAERS Safety Report 13019654 (Version 1)
Quarter: 2016Q4

REPORT INFORMATION
  Report Type: Spontaneous
  Country: US (occurrence: US)
  Receive Date: 20161212
  Receipt Date: 20161212
  Transmission Date: 20170207
  Serious: No
  Sender: FDA-Public Use
  Company Number: US-ROCHE-1791795

PATIENT
  Age: 1 Year
  Sex: Male

DRUGS (1)
  1. ACTEMRA [Suspect]
     Active Substance: TOCILIZUMAB
     Indication: JUVENILE IDIOPATHIC ARTHRITIS
     Dosage: INJECT 162 MG SUBCUTANEOUSLY EVERY OTHER WEEK
     Route: 058

REACTIONS (2)
  - Staphylococcal infection [Unknown]
  - Off label use [Unknown]
